FAERS Safety Report 26102262 (Version 1)
Quarter: 2025Q4

REPORT INFORMATION
  Report Type: Spontaneous
  Country: US (occurrence: US)
  Receive Date: 20251128
  Receipt Date: 20251128
  Transmission Date: 20260118
  Serious: Yes (Death, Hospitalization)
  Sender: ACCORD
  Company Number: US-COHERUS BIOSCIENCES, INC-2025-COH-US000433

PATIENT
  Age: 68 Year
  Sex: Female

DRUGS (9)
  1. UDENYCA [Suspect]
     Active Substance: PEGFILGRASTIM-CBQV
     Indication: Chemotherapy
     Dosage: 6 MG?STRENGTH: 6MG/0.6ML
     Route: 058
     Dates: start: 202503
  2. IRINOTECAN [Suspect]
     Active Substance: IRINOTECAN
     Indication: Pancreatic carcinoma
  3. IRINOTECAN [Suspect]
     Active Substance: IRINOTECAN
     Indication: Pancreatic carcinoma
  4. OXALIPLATIN [Suspect]
     Active Substance: OXALIPLATIN
     Indication: Pancreatic carcinoma
  5. OXALIPLATIN [Suspect]
     Active Substance: OXALIPLATIN
     Indication: Pancreatic carcinoma
  6. LEUCOVORIN CALCIUM [Suspect]
     Active Substance: LEUCOVORIN CALCIUM
     Indication: Pancreatic carcinoma
  7. LEUCOVORIN CALCIUM [Suspect]
     Active Substance: LEUCOVORIN CALCIUM
     Indication: Pancreatic carcinoma
  8. FLUOROURACIL [Suspect]
     Active Substance: FLUOROURACIL
     Indication: Pancreatic carcinoma
  9. FLUOROURACIL [Suspect]
     Active Substance: FLUOROURACIL
     Indication: Pancreatic carcinoma

REACTIONS (8)
  - Death [Fatal]
  - White blood cell count decreased [Unknown]
  - Platelet count decreased [Unknown]
  - Device malfunction [Unknown]
  - Product dose omission issue [Unknown]
  - Device malfunction [Unknown]
  - Product dose omission issue [Unknown]
  - Death [Fatal]

NARRATIVE: CASE EVENT DATE: 20250510
